FAERS Safety Report 7065767-5 (Version None)
Quarter: 2010Q4

REPORT INFORMATION
  Report Type: 
  Country: None (occurrence: None)
  Receive Date: 20101027
  Receipt Date: 19930923
  Transmission Date: 20110411
  Serious: Yes (Death, Life-Threatening, Hospitalization)
  Sender: FDA-Public Use
  Company Number: CH-ROCHE-930100685001

PATIENT
  Age: 51 Year
  Sex: Male

DRUGS (4)
  1. COTRIM [Suspect]
     Route: 065
     Dates: end: 19870131
  2. KETOCONAZOLE [Concomitant]
     Indication: CANDIDIASIS
     Route: 065
  3. NYSTATIN [Concomitant]
     Indication: CANDIDIASIS
     Route: 065
  4. AZT [Concomitant]
     Route: 065

REACTIONS (3)
  - BONE MARROW FAILURE [None]
  - DISSEMINATED CYTOMEGALOVIRAL INFECTION [None]
  - MYCOBACTERIUM AVIUM COMPLEX INFECTION [None]
